FAERS Safety Report 6911705-2 (Version None)
Quarter: 2010Q3

REPORT INFORMATION
  Report Type: 
  Country: None (occurrence: None)
  Receive Date: 20100806
  Receipt Date: 20100729
  Transmission Date: 20110219
  Serious: Yes (Other)
  Sender: FDA-Public Use
  Company Number: US-BAYER-201018029NA

PATIENT
  Age: 36 Year
  Sex: Female
  Weight: 59 kg

DRUGS (2)
  1. MAGNEVIST [Suspect]
     Indication: PRODUCT USED FOR UNKNOWN INDICATION
     Dosage: AS USED: 10 ML  UNIT DOSE: 10 ML
     Dates: start: 20100326, end: 20100326
  2. BENADRYL [Concomitant]

REACTIONS (3)
  - BLOOD PRESSURE INCREASED [None]
  - DRY MOUTH [None]
  - TONGUE DISORDER [None]
